FAERS Safety Report 4749931-3 (Version None)
Quarter: 2005Q3

REPORT INFORMATION
  Report Type: 
  Country: None (occurrence: None)
  Receive Date: 20050822
  Receipt Date: 20050817
  Transmission Date: 20060218
  Serious: Yes (Hospitalization)
  Sender: FDA-Public Use
  Company Number: NO-MERCK-0508NOR00013

PATIENT
  Age: 75 Year
  Sex: Male

DRUGS (6)
  1. ZOCOR [Suspect]
     Indication: CORONARY ARTERY DISEASE
     Route: 048
  2. WARFARIN SODIUM [Suspect]
     Indication: ATRIAL FIBRILLATION
     Route: 048
  3. LEVOTHYROXINE SODIUM [Concomitant]
     Indication: HYPOTHYROIDISM
     Route: 048
  4. FUROSEMIDE [Concomitant]
     Indication: MYOCARDIAL INFARCTION
     Route: 048
  5. ALLOPURINOL [Suspect]
     Route: 048
  6. VASOTEC RPD [Concomitant]
     Indication: MYOCARDIAL INFARCTION
     Route: 048

REACTIONS (2)
  - EPISTAXIS [None]
  - INTERNATIONAL NORMALISED RATIO INCREASED [None]
